FAERS Safety Report 18796828 (Version 5)
Quarter: 2021Q2

REPORT INFORMATION
  Report Type: Report from Study
  Country: US (occurrence: US)
  Receive Date: 20210128
  Receipt Date: 20210625
  Transmission Date: 20210717
  Serious: Yes (Other)
  Sender: FDA-Public Use
  Company Number: NVSC2021US017271

PATIENT
  Age: 62 Year
  Sex: Female

DRUGS (2)
  1. WATER PILLS [Concomitant]
     Active Substance: UNSPECIFIED INGREDIENT
     Indication: PRODUCT USED FOR UNKNOWN INDICATION
     Dosage: UNK
     Route: 065
  2. ENTRESTO [Suspect]
     Active Substance: SACUBITRIL\VALSARTAN
     Indication: PRODUCT USED FOR UNKNOWN INDICATION
     Dosage: 50 MG, BID (24/26 MG)
     Route: 048
     Dates: start: 20210109

REACTIONS (6)
  - Joint swelling [Recovering/Resolving]
  - Spinal osteoarthritis [Unknown]
  - Dyspnoea [Unknown]
  - Antiphospholipid syndrome [Unknown]
  - Memory impairment [Unknown]
  - Discouragement [Unknown]

NARRATIVE: CASE EVENT DATE: 202101
